FAERS Safety Report 11231495 (Version 2)
Quarter: 2015Q3

REPORT INFORMATION
  Report Type: Spontaneous
  Country: GB (occurrence: GB)
  Receive Date: 20150701
  Receipt Date: 20150929
  Transmission Date: 20151125
  Serious: Yes (Other)
  Sender: FDA-Public Use
  Company Number: GB-PFIZER INC-2015212717

PATIENT
  Age: 50 Year
  Sex: Female

DRUGS (2)
  1. RAMIPRIL. [Concomitant]
     Active Substance: RAMIPRIL
     Indication: HYPERTENSION
     Dosage: 1 MG, UNK
     Dates: end: 201505
  2. DOXAZOSIN MESILATE [Suspect]
     Active Substance: DOXAZOSIN MESYLATE
     Indication: HYPERTENSION
     Dosage: 1 MG, UNK
     Dates: start: 20150604, end: 20150608

REACTIONS (2)
  - Pain in extremity [Recovering/Resolving]
  - Neck pain [Recovering/Resolving]
